FAERS Safety Report 17490009 (Version 1)
Quarter: 2020Q1

REPORT INFORMATION
  Report Type: Spontaneous
  Country: US (occurrence: US)
  Receive Date: 20200303
  Receipt Date: 20200303
  Transmission Date: 20200409
  Serious: No
  Sender: FDA-Public Use
  Company Number: US-AKORN PHARMACEUTICALS-2019AKN01861

PATIENT
  Age: 35 Year
  Sex: Male
  Weight: 87.98 kg

DRUGS (3)
  1. UNSPECIFIED INHALER [Concomitant]
     Active Substance: UNSPECIFIED INGREDIENT
  2. MYORISAN [Suspect]
     Active Substance: ISOTRETINOIN
     Indication: CUTANEOUS LUPUS ERYTHEMATOSUS
     Dosage: 30 MG, 1X/DAY: 5 DOSES TOTAL
     Route: 048
     Dates: start: 20190730, end: 20190816
  3. UNSPECIFIED ALLERGY RELIEF [Concomitant]

REACTIONS (4)
  - Dry skin [Recovered/Resolved]
  - Chapped lips [Recovered/Resolved]
  - Off label use [Recovered/Resolved]
  - Pruritus [Recovered/Resolved]

NARRATIVE: CASE EVENT DATE: 2019
